FAERS Safety Report 21613578 (Version 1)
Quarter: 2022Q4

REPORT INFORMATION
  Report Type: Spontaneous
  Country: US (occurrence: US)
  Receive Date: 20221118
  Receipt Date: 20221118
  Transmission Date: 20230113
  Serious: No
  Sender: FDA-Public Use
  Company Number: US-GSK-US2022AMR168925

PATIENT
  Sex: Female

DRUGS (1)
  1. LAMOTRIGINE [Suspect]
     Active Substance: LAMOTRIGINE
     Indication: Cardiovascular disorder
     Dosage: 100 MG, QD

REACTIONS (8)
  - Feeling abnormal [Unknown]
  - Lacrimation increased [Unknown]
  - Fatigue [Unknown]
  - Disturbance in attention [Unknown]
  - Dizziness [Unknown]
  - Inability to afford medication [Unknown]
  - Product dose omission issue [Unknown]
  - Product use in unapproved indication [Unknown]
